FAERS Safety Report 5295802-6 (Version None)
Quarter: 2007Q2

REPORT INFORMATION
  Report Type: 
  Country: None (occurrence: None)
  Receive Date: 20070413
  Receipt Date: 20070403
  Transmission Date: 20071010
  Serious: Yes (Life-Threatening, Hospitalization)
  Sender: FDA-Public Use
  Company Number: JP-BRISTOL-MYERS SQUIBB COMPANY-13718200

PATIENT
  Age: 39 Year
  Sex: Female

DRUGS (5)
  1. IFOMIDE [Suspect]
     Indication: MALIGNANT SOFT TISSUE NEOPLASM
     Route: 041
     Dates: start: 20070201, end: 20070203
  2. ANNACA [Suspect]
     Route: 041
     Dates: start: 20061219, end: 20070203
  3. HALOPERIDOL [Interacting]
  4. FLUNITRAZEPAM [Interacting]
  5. VEPESID [Concomitant]
     Indication: ALVEOLAR SOFT PART SARCOMA
     Route: 042
     Dates: start: 20070201, end: 20070203

REACTIONS (16)
  - CHEST DISCOMFORT [None]
  - CHROMATURIA [None]
  - CONVULSION [None]
  - DEPRESSED LEVEL OF CONSCIOUSNESS [None]
  - DIALYSIS [None]
  - DRUG INTERACTION [None]
  - ENCEPHALOPATHY [None]
  - FALL [None]
  - HYPERAMMONAEMIA [None]
  - HYPERVENTILATION [None]
  - HYPOAESTHESIA [None]
  - LIVER DISORDER [None]
  - METABOLIC ACIDOSIS [None]
  - RESPIRATORY DISORDER [None]
  - RHABDOMYOLYSIS [None]
  - TACHYCARDIA [None]
